FAERS Safety Report 9626828 (Version 1)
Quarter: 2013Q4

REPORT INFORMATION
  Report Type: Spontaneous
  Country: US (occurrence: None)
  Receive Date: 20131011
  Receipt Date: 20131011
  Transmission Date: 20140711
  Serious: Yes (Death)
  Sender: FDA-Public Use
  Company Number: 2013AP008545

PATIENT
  Age: 65 Year
  Sex: Female

DRUGS (3)
  1. MELOXICAM TABLETS [Suspect]
     Route: 048
  2. QUETIAPINE FUMARATE [Suspect]
     Route: 048
  3. ACETAMINOPHEN [Suspect]
     Route: 048

REACTIONS (2)
  - Cardio-respiratory arrest [None]
  - Completed suicide [None]
